FAERS Safety Report 17909893 (Version 1)
Quarter: 2020Q2

REPORT INFORMATION
  Report Type: Spontaneous
  Country: US (occurrence: US)
  Receive Date: 20200618
  Receipt Date: 20200618
  Transmission Date: 20200714
  Serious: No
  Sender: FDA-Public Use
  Company Number: US-ASTRAZENECA-2020SE73418

PATIENT
  Age: 562 Month
  Sex: Male
  Weight: 83.9 kg

DRUGS (5)
  1. LORATATINE [Concomitant]
     Indication: ALLERGY TO PLANTS
     Dosage: 10.0MG AS REQUIRED
     Route: 048
  2. BRILINTA [Suspect]
     Active Substance: TICAGRELOR
     Indication: MYOCARDIAL INFARCTION
     Route: 048
     Dates: start: 20200310
  3. ASPIRIN. [Concomitant]
     Active Substance: ASPIRIN
     Route: 048
     Dates: start: 20200310, end: 202005
  4. ELIQUIS [Concomitant]
     Active Substance: APIXABAN
     Indication: MYOCARDIAL INFARCTION
     Route: 048
     Dates: start: 20200310
  5. BRILINTA [Suspect]
     Active Substance: TICAGRELOR
     Indication: STENT PLACEMENT
     Route: 048
     Dates: start: 20200310

REACTIONS (4)
  - Skin exfoliation [Unknown]
  - Skin odour abnormal [Unknown]
  - Acne [Unknown]
  - Skin discharge [Unknown]

NARRATIVE: CASE EVENT DATE: 202005
